FAERS Safety Report 10699968 (Version 1)
Quarter: 2014Q4

REPORT INFORMATION
  Report Type: Spontaneous
  Country: CA (occurrence: CA)
  Receive Date: 20141020
  Receipt Date: 20141020
  Transmission Date: 20150529
  Serious: Yes (Hospitalization)
  Sender: FDA-Public Use
  Company Number: CA-APOTEX-2014AP005240

PATIENT
  Age: 79 Year
  Sex: Female

DRUGS (3)
  1. APO-GALANTAMINE [Suspect]
     Active Substance: GALANTAMINE
     Dosage: 8 MG, UNK
     Route: 065
  2. VALPROATE SEMISODIUM [Concomitant]
     Active Substance: DIVALPROEX SODIUM
     Indication: BIPOLAR I DISORDER
     Dosage: 125 MG, BID
     Route: 065
  3. RISPERIDONE. [Concomitant]
     Active Substance: RISPERIDONE
     Indication: BIPOLAR I DISORDER
     Dosage: 0.25 MG, BID
     Route: 065

REACTIONS (2)
  - Mania [Recovered/Resolved]
  - Dementia Alzheimer^s type [None]
